FAERS Safety Report 23601129 (Version 2)
Quarter: 2024Q1

REPORT INFORMATION
  Report Type: Spontaneous
  Country: PE (occurrence: PE)
  Receive Date: 20240306
  Receipt Date: 20240314
  Transmission Date: 20240410
  Serious: Yes (Hospitalization, Other)
  Sender: FDA-Public Use
  Company Number: PE-PFIZER INC-PV202300157681

PATIENT
  Sex: Male

DRUGS (2)
  1. SUTENT [Suspect]
     Active Substance: SUNITINIB MALATE
     Dosage: DAILY FOR 4 WEEKS
     Route: 048
     Dates: start: 202308, end: 2023
  2. SUTENT [Suspect]
     Active Substance: SUNITINIB MALATE
     Dosage: DAILY FOR 2 WEEKS WITH 1 WEEK REST
     Dates: start: 2023, end: 2024

REACTIONS (14)
  - Paraesthesia [Not Recovered/Not Resolved]
  - Paraplegia [Not Recovered/Not Resolved]
  - Oral disorder [Recovering/Resolving]
  - Oral pain [Recovering/Resolving]
  - Tongue disorder [Recovering/Resolving]
  - Glossodynia [Recovering/Resolving]
  - Skin lesion [Recovering/Resolving]
  - Pain in extremity [Recovering/Resolving]
  - Diarrhoea [Recovering/Resolving]
  - Drug intolerance [Unknown]
  - Anosmia [Not Recovered/Not Resolved]
  - Ageusia [Not Recovered/Not Resolved]
  - Haematoma [Not Recovered/Not Resolved]
  - Oedema peripheral [Not Recovered/Not Resolved]
